FAERS Safety Report 10078917 (Version 1)
Quarter: 2014Q2

REPORT INFORMATION
  Report Type: Spontaneous
  Country: GB (occurrence: None)
  Receive Date: 20140411
  Receipt Date: 20140411
  Transmission Date: 20141212
  Serious: Yes (Death)
  Sender: FDA-Public Use
  Company Number: 2014-000971

PATIENT
  Age: 20 Year
  Sex: Female
  Weight: 60 kg

DRUGS (4)
  1. SARAFEM [Suspect]
     Indication: ANXIETY
     Route: 048
     Dates: start: 20121130, end: 20130203
  2. DIANETTE [Concomitant]
  3. GEDAREL [Concomitant]
  4. PROPANOLOL HYDROCHLORIDE (PROPANOLOL HYDROCHLORIDE) [Concomitant]

REACTIONS (4)
  - Completed suicide [None]
  - Intentional overdose [None]
  - Mydriasis [None]
  - Personality change [None]
